FAERS Safety Report 22235795 (Version 1)
Quarter: 2023Q2

REPORT INFORMATION
  Report Type: Spontaneous
  Country: US (occurrence: None)
  Receive Date: 20230419
  Receipt Date: 20230419
  Transmission Date: 20230722
  Serious: Yes (Life-Threatening, Other)
  Sender: FDA-Public Use
  Company Number: None

PATIENT
  Age: 70 Year
  Sex: Female
  Weight: 96.16 kg

DRUGS (19)
  1. CABENUVA [Suspect]
     Active Substance: CABOTEGRAVIR\RILPIVIRINE
     Indication: HIV infection
     Dosage: DOSING: 2 INJECTION: ONE EACH BUTTOCK (LEFT SIDE/RT. SIDE)?
     Dates: start: 20220902, end: 20220930
  2. PREZCOBIX [Concomitant]
     Active Substance: COBICISTAT\DARUNAVIR ETHANOLATE
  3. ZIAGEN [Concomitant]
     Active Substance: ABACAVIR SULFATE
  4. VIREAD [Concomitant]
     Active Substance: TENOFOVIR DISOPROXIL FUMARATE
  5. OMEPRAZOLE [Concomitant]
     Active Substance: OMEPRAZOLE
  6. LEVOCETIRIZINE [Concomitant]
     Active Substance: LEVOCETIRIZINE
  7. ESCITALOPRAM [Concomitant]
     Active Substance: ESCITALOPRAM OXALATE
  8. LISINOPRIL [Concomitant]
     Active Substance: LISINOPRIL
  9. TRAZODONE [Concomitant]
     Active Substance: TRAZODONE HYDROCHLORIDE
  10. GABAPENTIN [Concomitant]
     Active Substance: GABAPENTIN
  11. DICYCLOMINE [Concomitant]
     Active Substance: DICYCLOMINE HYDROCHLORIDE
  12. ALBUTEROL [Concomitant]
     Active Substance: ALBUTEROL
  13. MINERALS\VITAMINS [Concomitant]
     Active Substance: MINERALS\VITAMINS
  14. MULTIGUMMIES 50+ [Concomitant]
  15. ADULT GUMMIY D3 VITAMINS [Concomitant]
  16. ARNUITY ELLIPTA [Concomitant]
     Active Substance: FLUTICASONE FUROATE
  17. AZELASTIN 0.1% NASAL SPRAY [Concomitant]
  18. ALBUTEROL [Concomitant]
     Active Substance: ALBUTEROL
  19. TYLENOL [Concomitant]
     Active Substance: ACETAMINOPHEN

REACTIONS (9)
  - Injection site mass [None]
  - Urticaria [None]
  - Asthma [None]
  - Therapy cessation [None]
  - Pruritus [None]
  - Generalised oedema [None]
  - Gait disturbance [None]
  - Dermatitis [None]
  - Skin burning sensation [None]
